FAERS Safety Report 5870333-0 (Version None)
Quarter: 2008Q3

REPORT INFORMATION
  Report Type: 
  Country: None (occurrence: None)
  Receive Date: 20080904
  Receipt Date: 20070919
  Transmission Date: 20090109
  Serious: No
  Sender: FDA-Public Use
  Company Number: US-BRISTOL-MYERS SQUIBB COMPANY-13913603

PATIENT
  Age: 64 Year
  Sex: Male
  Weight: 109 kg

DRUGS (5)
  1. DEFINITY [Suspect]
     Dates: start: 20070919, end: 20070919
  2. FLAXSEED OIL [Concomitant]
  3. ZETIA [Concomitant]
  4. WELCHOL [Concomitant]
  5. ASPIRIN [Concomitant]

REACTIONS (1)
  - MUSCULOSKELETAL PAIN [None]
